FAERS Safety Report 24581362 (Version 2)
Quarter: 2024Q4

REPORT INFORMATION
  Report Type: Spontaneous
  Country: CN (occurrence: CN)
  Receive Date: 20241105
  Receipt Date: 20241106
  Transmission Date: 20250115
  Serious: Yes (Other)
  Sender: BRISTOL-MYERS SQUIBB COMPANY
  Company Number: CN-BRISTOL-MYERS SQUIBB COMPANY-2024-170870

PATIENT
  Age: 73 Year
  Sex: Female
  Weight: 47 kg

DRUGS (7)
  1. NIVOLUMAB [Suspect]
     Active Substance: NIVOLUMAB
     Indication: Oesophageal carcinoma
     Dosage: FREQUENCY: DRUG USE-TIMES: 1; DRUG USE-DAYS: 1
     Route: 041
     Dates: start: 20241011, end: 20241011
  2. NIVOLUMAB [Suspect]
     Active Substance: NIVOLUMAB
     Dosage: FREQUENCY: DRUG USE-TIMES: 1; DRUG USE-DAYS: 1
     Route: 041
     Dates: start: 20241011, end: 20241011
  3. PACLITAXEL [Suspect]
     Active Substance: PACLITAXEL
     Indication: Oesophageal carcinoma
     Dates: start: 20241011, end: 20241011
  4. CARBOPLATIN [Suspect]
     Active Substance: CARBOPLATIN
     Indication: Oesophageal carcinoma
     Dates: start: 20241011, end: 20241011
  5. SODIUM CHLORIDE [Concomitant]
     Active Substance: SODIUM CHLORIDE
     Indication: Product used for unknown indication
     Dates: start: 20241011, end: 20241011
  6. SODIUM CHLORIDE [Concomitant]
     Active Substance: SODIUM CHLORIDE
     Dates: start: 20241011, end: 20241011
  7. DEXTROSE [Concomitant]
     Active Substance: DEXTROSE MONOHYDRATE
     Indication: Product used for unknown indication
     Dates: start: 20241011, end: 20241011

REACTIONS (3)
  - White blood cell count decreased [Recovering/Resolving]
  - Platelet count decreased [Recovering/Resolving]
  - Off label use [Unknown]

NARRATIVE: CASE EVENT DATE: 20241017
